FAERS Safety Report 24431808 (Version 2)
Quarter: 2024Q4

REPORT INFORMATION
  Report Type: Spontaneous
  Country: US (occurrence: US)
  Receive Date: 20241014
  Receipt Date: 20241022
  Transmission Date: 20250114
  Serious: Yes (Hospitalization, Other)
  Sender: AUROBINDO
  Company Number: US-MLMSERVICE-20240923-PI205399-00097-1

PATIENT
  Age: 63 Year
  Sex: Male

DRUGS (2)
  1. MYCOPHENOLIC ACID [Suspect]
     Active Substance: MYCOPHENOLIC ACID
     Indication: Hepatitis C
     Dosage: UNK
     Route: 065
  2. CYCLOSPORINE [Suspect]
     Active Substance: CYCLOSPORINE
     Indication: Hepatitis C
     Dosage: UNK
     Route: 065

REACTIONS (6)
  - Atrioventricular block complete [Unknown]
  - Staphylococcal infection [Unknown]
  - Cardiac valve abscess [Unknown]
  - Mitral valve incompetence [Unknown]
  - Diarrhoea [Unknown]
  - Endocarditis [Unknown]
